FAERS Safety Report 4999765-X (Version None)
Quarter: 2006Q2

REPORT INFORMATION
  Report Type: 
  Country: None (occurrence: None)
  Receive Date: 20060511
  Receipt Date: 20060503
  Transmission Date: 20061013
  Serious: Yes (Other)
  Sender: FDA-Public Use
  Company Number: BE-GLAXOSMITHKLINE-B0423166A

PATIENT
  Sex: Male

DRUGS (4)
  1. AVANDIA [Suspect]
     Dosage: 8MG PER DAY
     Route: 048
  2. COVERSYL [Suspect]
     Indication: HYPERTENSION
     Route: 048
  3. ASPIRIN [Concomitant]
     Route: 065
  4. PLAVIX [Concomitant]
     Route: 065

REACTIONS (4)
  - DIZZINESS [None]
  - DRUG INTERACTION [None]
  - HYPERHIDROSIS [None]
  - HYPOGLYCAEMIA [None]
